FAERS Safety Report 7117080-5 (Version None)
Quarter: 2010Q4

REPORT INFORMATION
  Report Type: 
  Country: None (occurrence: None)
  Receive Date: 20101122
  Receipt Date: 20101112
  Transmission Date: 20110411
  Serious: No
  Sender: FDA-Public Use
  Company Number: US-PFIZER INC-2010147445

PATIENT
  Sex: Female
  Weight: 81.6 kg

DRUGS (3)
  1. XALATAN [Suspect]
     Indication: INTRAOCULAR PRESSURE TEST ABNORMAL
     Dosage: UNK, DAILY
     Dates: start: 20101101
  2. XANAX [Concomitant]
     Indication: ANXIETY
     Dosage: 0.25 MG, UNK
  3. TRAVATAN [Concomitant]
     Dosage: UNK

REACTIONS (2)
  - ASTHENIA [None]
  - FATIGUE [None]
